FAERS Safety Report 13756339 (Version 2)
Quarter: 2017Q3

REPORT INFORMATION
  Report Type: Spontaneous
  Country: DK (occurrence: DK)
  Receive Date: 20170714
  Receipt Date: 20170720
  Transmission Date: 20171127
  Serious: Yes (Hospitalization, Other)
  Sender: FDA-Public Use
  Company Number: DK-PFIZER INC-2017302704

PATIENT
  Age: 62 Year
  Sex: Male

DRUGS (12)
  1. PAMIDRONATE DISODIUM. [Suspect]
     Active Substance: PAMIDRONATE DISODIUM
     Indication: PLASMA CELL MYELOMA
  2. GABAPENTIN. [Concomitant]
     Active Substance: GABAPENTIN
     Dosage: UNK
  3. PINEX [Concomitant]
     Active Substance: ACETAMINOPHEN
     Dosage: UNK
  4. ZINC. [Concomitant]
     Active Substance: ZINC
     Dosage: UNK
  5. DUOVENT [Concomitant]
     Active Substance: FENOTEROL HYDROBROMIDE
     Dosage: UNK
  6. UNIKALK FORTE [Concomitant]
     Dosage: UNK
  7. PAMIDRONATE DISODIUM. [Suspect]
     Active Substance: PAMIDRONATE DISODIUM
     Indication: HYPERCALCAEMIA
     Dosage: UNK UNK, WEEKLY
     Route: 042
     Dates: start: 20100609, end: 20100701
  8. MABLET [Concomitant]
     Dosage: UNK
  9. MORFINE [Concomitant]
     Active Substance: MORPHINE
     Dosage: UNK
  10. METHADONE [Concomitant]
     Active Substance: METHADONE HYDROCHLORIDE
     Dosage: UNK
  11. PANTOPRAZOLE [Concomitant]
     Active Substance: PANTOPRAZOLE
     Dosage: UNK
  12. BROMAM [Concomitant]
     Active Substance: BROMAZEPAM
     Dosage: UNK

REACTIONS (8)
  - Mucosal necrosis [Recovered/Resolved]
  - Skin ulcer [Recovered/Resolved]
  - Osteonecrosis of jaw [Recovered/Resolved]
  - Tooth disorder [Unknown]
  - Exposed bone in jaw [Recovered/Resolved]
  - Herpes zoster infection neurological [Unknown]
  - Pain [Recovered/Resolved]
  - Mouth ulceration [Recovered/Resolved]

NARRATIVE: CASE EVENT DATE: 201007
